FAERS Safety Report 17684188 (Version 2)
Quarter: 2020Q3

REPORT INFORMATION
  Report Type: Report from Study
  Country: CO (occurrence: CO)
  Receive Date: 20200420
  Receipt Date: 20200818
  Transmission Date: 20201102
  Serious: Yes (Hospitalization, Other)
  Sender: FDA-Public Use
  Company Number: PHHY2019CO120305

PATIENT
  Sex: Female
  Weight: 70 kg

DRUGS (1)
  1. VOTRIENT [Suspect]
     Active Substance: PAZOPANIB HYDROCHLORIDE
     Indication: METASTATIC RENAL CELL CARCINOMA
     Dosage: 800 MG, QD (2 OF 400 MG)
     Route: 048
     Dates: start: 201905

REACTIONS (23)
  - Condition aggravated [Unknown]
  - Liver disorder [Unknown]
  - Dysuria [Unknown]
  - Tongue exfoliation [Unknown]
  - Hair colour changes [Unknown]
  - Alopecia [Unknown]
  - Dysgeusia [Unknown]
  - Discoloured vomit [Unknown]
  - Decreased appetite [Unknown]
  - Vulvovaginal dryness [Unknown]
  - Vulvovaginal burning sensation [Unknown]
  - Abdominal pain upper [Unknown]
  - Nausea [Unknown]
  - Venous thrombosis [Unknown]
  - Depressed mood [Unknown]
  - Diarrhoea [Unknown]
  - Mass [Unknown]
  - Metastases to lung [Unknown]
  - Platelet count decreased [Unknown]
  - Vomiting [Unknown]
  - Weight decreased [Unknown]
  - Dry skin [Unknown]
  - Ulcer [Unknown]
